FAERS Safety Report 9163988 (Version 1)
Quarter: 2013Q1

REPORT INFORMATION
  Report Type: Spontaneous
  Country: US (occurrence: US)
  Receive Date: 20130314
  Receipt Date: 20130314
  Transmission Date: 20140127
  Serious: Yes (Death, Hospitalization)
  Sender: FDA-Public Use
  Company Number: US-B.I. PHARMACEUTICALS,INC./RIDGEFIELD-2013-BI-06648BP

PATIENT
  Age: 85 Year
  Sex: Female
  Weight: 77.11 kg

DRUGS (15)
  1. PRADAXA [Suspect]
     Indication: ANTICOAGULANT THERAPY
     Dosage: 150 MG
     Dates: start: 20110918, end: 20110926
  2. PRADAXA [Suspect]
     Indication: ATRIAL FIBRILLATION
  3. COZAAR [Concomitant]
     Dosage: 25 MG
  4. LASIX [Concomitant]
  5. PROTONIX [Concomitant]
     Dosage: 40 MG
  6. SYNTHROID [Concomitant]
     Dosage: 50 MCG
  7. SOTALOL [Concomitant]
     Dosage: 120 MG
  8. AMITRIPTYLINE [Concomitant]
     Dosage: 50 MG
  9. PRAVASTATIN [Concomitant]
     Dosage: 40 MG
  10. ASPIRIN [Concomitant]
     Dosage: 81 MG
  11. NITRO PATCH [Concomitant]
     Dosage: 0.4 MG
  12. XANAX [Concomitant]
  13. COMBIGAN [Concomitant]
  14. TRAVATAN [Concomitant]
  15. NEVANAC [Concomitant]

REACTIONS (1)
  - Upper gastrointestinal haemorrhage [Fatal]
